FAERS Safety Report 7648278-5 (Version None)
Quarter: 2011Q3

REPORT INFORMATION
  Report Type: 
  Country: None (occurrence: None)
  Receive Date: 20110801
  Receipt Date: 20090513
  Transmission Date: 20111222
  Serious: Yes (Other)
  Sender: FDA-Public Use
  Company Number: US-BAYER-200917707NA

PATIENT
  Age: 55 Year
  Sex: Male
  Weight: 131.97 kg

DRUGS (35)
  1. OMNISCAN [Suspect]
     Indication: NUCLEAR MAGNETIC RESONANCE IMAGING
     Dates: start: 20041203, end: 20041203
  2. COLCHICINE [Concomitant]
     Indication: GOUT
     Dosage: 0.6 MG ONCE A DAY
  3. MAGNEVIST [Suspect]
     Indication: ARTERIOGRAM
     Dates: start: 20070104, end: 20070104
  4. PROHANCE [Suspect]
     Indication: NUCLEAR MAGNETIC RESONANCE IMAGING
  5. HUMALOG [Concomitant]
     Indication: DIABETES MELLITUS
  6. ZEMPLAR [Concomitant]
     Dosage: 1 MCG ONCE DAILY
  7. OPTIMARK [Suspect]
     Indication: NUCLEAR MAGNETIC RESONANCE IMAGING
  8. PREDNISONE [Concomitant]
     Dosage: 5 MG ONCE A DAY
  9. GEMFIBROZIL [Concomitant]
     Indication: BLOOD CHOLESTEROL ABNORMAL
     Dosage: 600 MG TWO TIMES A DAY
  10. PROGRAF [Concomitant]
     Dosage: 4 MG TWO TIMES A DAY
  11. GABAPENTIN [Concomitant]
     Indication: NEURALGIA
     Dosage: 300 MG THREE TIMES A DAY
  12. CIMETIDINE [Concomitant]
     Dosage: 200 MG TWICE A DAY
  13. ISORDIL [Concomitant]
  14. MAGNEVIST [Suspect]
     Indication: NUCLEAR MAGNETIC RESONANCE IMAGING
     Dosage: 40 ML
     Dates: start: 20060814, end: 20060814
  15. BUMEX [Concomitant]
     Dosage: 4 MG IN THE MORNING AND 2 MG IN THE EVENING
  16. ACETYLSALICYLIC ACID SRT [Concomitant]
     Dosage: 81 MG DAILY
  17. PENTOXIL [Concomitant]
     Indication: INTERMITTENT CLAUDICATION
     Dosage: 400 MG THREE TIMES A DAY
  18. FLOMAX [Concomitant]
     Dosage: 0.4 MG ONCE A DAY
  19. SILDENAFIL CITRATE [Concomitant]
     Indication: PULMONARY HYPERTENSION
     Dosage: 20 MG THREE TIMES A DAY
  20. LANTUS [Concomitant]
     Indication: DIABETES MELLITUS
     Dosage: 60 UNITS
  21. ZOLPIDEM [Concomitant]
     Indication: SLEEP DISORDER
     Dosage: 10 MG ONCE A DAY
  22. MAGNEVIST [Suspect]
     Indication: ANGIOGRAM
     Dosage: 4 ML
     Dates: start: 20061208, end: 20061208
  23. PHOSLO [Concomitant]
     Dosage: 667 MG THREE TIMES DAILY
  24. COUMADIN [Concomitant]
     Indication: ATRIAL FIBRILLATION
     Dosage: 5 MG DAILY
  25. VITRON-C [Concomitant]
     Indication: MINERAL SUPPLEMENTATION
  26. INSPRA [Concomitant]
     Indication: HYPERTENSION
     Dosage: 50 MG ONCE A DAY
  27. MULTIHANCE [Suspect]
     Indication: NUCLEAR MAGNETIC RESONANCE IMAGING
  28. COREG [Concomitant]
     Indication: HYPERTENSION
     Dosage: 20 MG ONCE A DAY
  29. ATENOLOL [Concomitant]
     Dosage: 25 MG ONCE A DAY
  30. HYDROCHLOROTHIAZIDE [Concomitant]
  31. ALDACTONE [Concomitant]
  32. CELLCEPT [Concomitant]
     Dosage: 250 MG TWO TIMES A DAY
  33. LANOXIN [Concomitant]
     Dosage: 0.125 MG DAILY
  34. ALLOPURINOL [Concomitant]
     Indication: GOUT
     Dosage: 100 MG ONCE DAILY
  35. ARANESP [Concomitant]
     Dosage: 100 MCG ONCE A WEEK

REACTIONS (16)
  - PAIN OF SKIN [None]
  - PAIN [None]
  - EMOTIONAL DISTRESS [None]
  - OEDEMA PERIPHERAL [None]
  - ANXIETY [None]
  - DEFORMITY [None]
  - ANHEDONIA [None]
  - ERYTHEMA [None]
  - JOINT STIFFNESS [None]
  - MOBILITY DECREASED [None]
  - FIBROSIS [None]
  - GENERAL PHYSICAL HEALTH DETERIORATION [None]
  - NEPHROGENIC SYSTEMIC FIBROSIS [None]
  - SKIN EXFOLIATION [None]
  - SKIN FIBROSIS [None]
  - SCAR [None]
